FAERS Safety Report 10034592 (Version 2)
Quarter: 2014Q1

REPORT INFORMATION
  Report Type: Report from Study
  Country: CA (occurrence: CA)
  Receive Date: 20140325
  Receipt Date: 20140331
  Transmission Date: 20141002
  Serious: Yes (Hospitalization)
  Sender: FDA-Public Use
  Company Number: CA-UCBSA-114722

PATIENT
  Age: 78 Year
  Sex: Female
  Weight: 81.6 kg

DRUGS (7)
  1. CIMZIA [Suspect]
     Indication: RHEUMATOID ARTHRITIS
     Route: 058
     Dates: start: 20120912
  2. ATIVAN [Concomitant]
     Indication: ANXIETY
     Dosage: 1MG BED
     Route: 048
     Dates: start: 20110721
  3. MONOCOR [Concomitant]
     Indication: UNEVALUABLE EVENT
     Route: 048
     Dates: start: 1997
  4. PREDNISONE [Concomitant]
     Indication: RHEUMATOID ARTHRITIS
     Route: 048
     Dates: start: 20130719
  5. EFFEXOR XR [Concomitant]
     Indication: DEPRESSION
     Route: 048
     Dates: start: 20130828
  6. SEROQUEL [Concomitant]
     Indication: DEPRESSION
     Route: 048
     Dates: start: 201211
  7. MAVIK [Concomitant]
     Indication: HYPERTENSION
     Route: 048
     Dates: start: 2011

REACTIONS (1)
  - Hospitalisation [Not Recovered/Not Resolved]
